FAERS Safety Report 5473255-2 (Version None)
Quarter: 2007Q4

REPORT INFORMATION
  Report Type: 
  Country: None (occurrence: None)
  Receive Date: 20071001
  Receipt Date: 20070926
  Transmission Date: 20080405
  Serious: Yes (Life-Threatening)
  Sender: FDA-Public Use
  Company Number: FR-ASTRAZENECA-2007CG01361

PATIENT
  Age: 30834 Day
  Sex: Female

DRUGS (9)
  1. DIPRIVAN [Suspect]
     Indication: ANAESTHESIA
     Route: 042
     Dates: start: 20070628, end: 20070628
  2. HEPARIN SODIUM [Suspect]
     Route: 042
     Dates: start: 20070628, end: 20070628
  3. MIDAZOLAM HCL [Suspect]
     Indication: ANAESTHESIA
     Route: 042
     Dates: start: 20070628, end: 20070628
  4. PAVULON [Suspect]
     Indication: ANAESTHESIA
     Route: 042
     Dates: start: 20070628, end: 20070628
  5. SUFENTA [Suspect]
     Indication: ANAESTHESIA
     Route: 042
     Dates: start: 20070628, end: 20070628
  6. TRASYLOL [Suspect]
     Route: 042
     Dates: start: 20070628, end: 20070628
  7. AMLOR [Concomitant]
  8. ATARAX [Concomitant]
     Indication: PREMEDICATION
     Dates: start: 20070628, end: 20070628
  9. CEFUROXIME [Concomitant]
     Route: 042
     Dates: start: 20070628, end: 20070628

REACTIONS (1)
  - SHOCK [None]
